FAERS Safety Report 5082561-5 (Version None)
Quarter: 2006Q3

REPORT INFORMATION
  Report Type: 
  Country: None (occurrence: None)
  Receive Date: 20060814
  Receipt Date: 20060727
  Transmission Date: 20061208
  Serious: Yes (Other)
  Sender: FDA-Public Use
  Company Number: TRP_0827_2006

PATIENT
  Age: 44 Year
  Sex: Female
  Weight: 83.0083 kg

DRUGS (6)
  1. RIBASPHERE [Suspect]
     Indication: HEPATITIS C
     Dosage: 1000 MG QDAY PO
     Route: 048
     Dates: start: 20060504
  2. PEG-INTRON [Suspect]
     Indication: HEPATITIS C
     Dosage: 120 MCG QWK SC
     Route: 058
     Dates: start: 20060504
  3. LEXAPRO [Concomitant]
  4. METOPROLO SUCCINATE [Concomitant]
  5. MOTRIN [Concomitant]
  6. PREMARIN [Concomitant]

REACTIONS (7)
  - DEHYDRATION [None]
  - DIARRHOEA [None]
  - HEAT STROKE [None]
  - MIGRAINE [None]
  - NAUSEA [None]
  - PYREXIA [None]
  - VOMITING [None]
